FAERS Safety Report 20325314 (Version 3)
Quarter: 2022Q1

REPORT INFORMATION
  Report Type: Spontaneous
  Country: CA (occurrence: CA)
  Receive Date: 20220112
  Receipt Date: 20220225
  Transmission Date: 20220423
  Serious: Yes (Other)
  Sender: FDA-Public Use
  Company Number: CA-CELLTRION INC.-2020CA021236

PATIENT

DRUGS (17)
  1. INFLECTRA [Suspect]
     Active Substance: INFLIXIMAB-DYYB
     Indication: Crohn^s disease
     Dosage: 10 MG/KG, Q (EVERY) 0, 2, 6 THEN EVERY 8 WEEKS
     Route: 042
     Dates: start: 20200323, end: 20211126
  2. INFLECTRA [Suspect]
     Active Substance: INFLIXIMAB-DYYB
     Dosage: 10 MG/KG, Q (EVERY) 0, 2, 6 THEN EVERY 8 WEEKS
     Route: 042
     Dates: start: 20200406
  3. INFLECTRA [Suspect]
     Active Substance: INFLIXIMAB-DYYB
     Dosage: 10 MG/KG, Q (EVERY) 0, 2, 6 THEN EVERY 8 WEEKS
     Route: 042
     Dates: start: 20200505
  4. INFLECTRA [Suspect]
     Active Substance: INFLIXIMAB-DYYB
     Dosage: 10 MG/KG, Q (EVERY) 0, 2, 6 THEN EVERY 8 WEEKS
     Route: 042
     Dates: start: 20200702
  5. INFLECTRA [Suspect]
     Active Substance: INFLIXIMAB-DYYB
     Dosage: 10 MG/KG, Q (EVERY) 0, 2, 6 THEN EVERY 8 WEEKS
     Route: 042
     Dates: start: 20210805
  6. INFLECTRA [Suspect]
     Active Substance: INFLIXIMAB-DYYB
     Dosage: 10 MG/KG, Q (EVERY) 0, 2, 6 THEN EVERY 8 WEEKS
     Route: 042
     Dates: start: 20200901
  7. INFLECTRA [Suspect]
     Active Substance: INFLIXIMAB-DYYB
     Dosage: 10 MG/KG, Q (EVERY) 0, 2, 6 THEN EVERY 8 WEEKS
     Route: 042
     Dates: start: 20210930
  8. INFLECTRA [Suspect]
     Active Substance: INFLIXIMAB-DYYB
     Dosage: 10 MG/KG, Q (EVERY) 0, 2, 6 THEN EVERY 8 WEEKS
     Route: 042
     Dates: start: 20211126
  9. INFLECTRA [Suspect]
     Active Substance: INFLIXIMAB-DYYB
     Dosage: 10 MG/KG, Q (EVERY) 0, 2, 6 THEN EVERY 8 WEEKS
     Route: 042
     Dates: start: 20211129
  10. INFLECTRA [Suspect]
     Active Substance: INFLIXIMAB-DYYB
     Dosage: 10 MG/KG, EVERY 4 WEEKS
     Route: 042
     Dates: start: 20211228
  11. INFLECTRA [Suspect]
     Active Substance: INFLIXIMAB-DYYB
     Dosage: 10 MG/KG, EVERY 4 WEEKS
     Route: 042
     Dates: start: 20220128
  12. ATORVASTATIN [Concomitant]
     Active Substance: ATORVASTATIN
     Dosage: UNK
  13. NICODERM CQ [Concomitant]
     Active Substance: NICOTINE
     Dosage: 21 MG, DAILY
     Route: 062
  14. NICORETTE [Concomitant]
     Active Substance: NICOTINE
     Dosage: UNK, AS NEEDED
     Route: 048
  15. PREDNISONE [Concomitant]
     Active Substance: PREDNISONE
     Dosage: UNK
  16. SOLU-MEDROL [Concomitant]
     Active Substance: METHYLPREDNISOLONE SODIUM SUCCINATE
     Dosage: UNK
     Route: 042
     Dates: start: 202003
  17. TAMIFLU [Concomitant]
     Active Substance: OSELTAMIVIR PHOSPHATE
     Dosage: FOR 10 DAYS

REACTIONS (15)
  - Therapeutic response shortened [Unknown]
  - Weight increased [Unknown]
  - Vision blurred [Unknown]
  - Condition aggravated [Unknown]
  - Influenza [Unknown]
  - Diplopia [Unknown]
  - Fistula [Unknown]
  - Blood pressure systolic increased [Unknown]
  - Eye discharge [Unknown]
  - Abnormal sensation in eye [Unknown]
  - Ocular discomfort [Unknown]
  - Blood pressure increased [Unknown]
  - Condition aggravated [Recovering/Resolving]
  - Off label use [Unknown]
  - Off label use [Unknown]

NARRATIVE: CASE EVENT DATE: 20200323
